FAERS Safety Report 6883950-6 (Version None)
Quarter: 2010Q3

REPORT INFORMATION
  Report Type: 
  Country: None (occurrence: None)
  Receive Date: 20100729
  Receipt Date: 20100726
  Transmission Date: 20110219
  Serious: Yes (Other)
  Sender: FDA-Public Use
  Company Number: RS-WYE-H16420110

PATIENT
  Sex: Male
  Weight: 98 kg

DRUGS (2)
  1. TYGACIL [Suspect]
     Indication: CELLULITIS
     Route: 042
     Dates: start: 20100401, end: 20100416
  2. MEROPENEM [Concomitant]
     Indication: CELLULITIS
     Route: 042
     Dates: start: 20100401, end: 20100416

REACTIONS (3)
  - HIGH DENSITY LIPOPROTEIN DECREASED [None]
  - HYPOCHOLESTEROLAEMIA [None]
  - LOW DENSITY LIPOPROTEIN DECREASED [None]
